FAERS Safety Report 8207971-6 (Version None)
Quarter: 2012Q1

REPORT INFORMATION
  Report Type: 
  Country: None (occurrence: None)
  Receive Date: 20120314
  Receipt Date: 20120301
  Transmission Date: 20120608
  Serious: No
  Sender: FDA-Public Use
  Company Number: US-B.I. PHARMACEUTICALS,INC./RIDGEFIELD-2012-BP-04026BP

PATIENT
  Sex: Female

DRUGS (8)
  1. SPIRIVA [Suspect]
     Indication: CHRONIC OBSTRUCTIVE PULMONARY DISEASE
     Dosage: 18 MCG
     Route: 055
     Dates: start: 20100101
  2. MULTI-VITAMIN [Concomitant]
     Indication: PROPHYLAXIS
     Route: 048
  3. XOPENEX [Concomitant]
     Indication: CHRONIC OBSTRUCTIVE PULMONARY DISEASE
     Route: 055
  4. VITAMIN D [Concomitant]
     Indication: PROPHYLAXIS
     Route: 048
  5. FISH OIL [Concomitant]
     Indication: PROPHYLAXIS
     Route: 048
  6. CARAFATE [Concomitant]
     Indication: GASTRIC ULCER
     Route: 048
  7. VITAMIN B-12 [Concomitant]
     Indication: PROPHYLAXIS
     Route: 030
  8. CLONAZEPAM [Concomitant]
     Indication: TREMOR
     Dosage: 0.5 MG
     Route: 048

REACTIONS (8)
  - SINUS DISORDER [None]
  - NAUSEA [None]
  - ABNORMAL DREAMS [None]
  - DRY MOUTH [None]
  - HEART RATE INCREASED [None]
  - PRURITUS GENERALISED [None]
  - ACCIDENTAL OVERDOSE [None]
  - FATIGUE [None]
